FAERS Safety Report 6164206-6 (Version None)
Quarter: 2009Q2

REPORT INFORMATION
  Report Type: 
  Country: None (occurrence: None)
  Receive Date: 20090422
  Receipt Date: 20090413
  Transmission Date: 20091009
  Serious: Yes (Life-Threatening, Hospitalization)
  Sender: FDA-Public Use
  Company Number: US-WYE-H08533509

PATIENT
  Age: 71 Year
  Sex: Female

DRUGS (3)
  1. PRISTIQ [Suspect]
     Indication: DEPRESSION
     Route: 048
     Dates: start: 20090101, end: 20090201
  2. NAMENDA [Concomitant]
  3. ARICEPT [Concomitant]
     Indication: DEMENTIA

REACTIONS (2)
  - CRYING [None]
  - SUICIDAL IDEATION [None]
